FAERS Safety Report 9118868 (Version 2)
Quarter: 2013Q1

REPORT INFORMATION
  Report Type: Spontaneous
  Country: FR (occurrence: FR)
  Receive Date: 20130226
  Receipt Date: 20130305
  Transmission Date: 20140127
  Serious: Yes (Other)
  Sender: FDA-Public Use
  Company Number: FR-MERCK-1302FRA008552

PATIENT
  Age: 49 Year
  Sex: Male

DRUGS (5)
  1. REBETOL [Suspect]
     Indication: HEPATITIS C VIRUS TEST POSITIVE
     Dosage: 200 MG, QD
     Route: 048
     Dates: start: 20121015
  2. PEGINTERFERON ALFA-2A [Suspect]
     Indication: HEPATITIS C VIRUS TEST POSITIVE
     Dosage: 1 DF, QW
     Route: 058
     Dates: start: 20121015
  3. TELAPREVIR [Suspect]
     Indication: HEPATITIS C VIRUS TEST POSITIVE
     Dosage: 375 MG, QD
     Route: 048
     Dates: start: 20121015, end: 20130114
  4. GLICLAZIDE [Concomitant]
     Indication: TYPE 2 DIABETES MELLITUS
     Dosage: 30 MG, BID
     Route: 048
     Dates: start: 20110101
  5. LAMOTRIGINE [Concomitant]
     Indication: EPILEPSY
     Dosage: 100 MG, QD
     Route: 048
     Dates: start: 20110101

REACTIONS (1)
  - Polyneuropathy [Not Recovered/Not Resolved]
